FAERS Safety Report 24981393 (Version 1)
Quarter: 2025Q1

REPORT INFORMATION
  Report Type: Report from Study
  Country: US (occurrence: US)
  Receive Date: 20250218
  Receipt Date: 20250218
  Transmission Date: 20250409
  Serious: Yes (Death)
  Sender: OTSUKA
  Company Number: US-MMM-Otsuka-VUEO604J

PATIENT
  Sex: Male

DRUGS (1)
  1. ARIPIPRAZOLE [Suspect]
     Active Substance: ARIPIPRAZOLE
     Indication: Bipolar disorder
     Dosage: 400 MG, QM
     Route: 030

REACTIONS (1)
  - Death [Fatal]
